FAERS Safety Report 13442331 (Version 1)
Quarter: 2017Q2

REPORT INFORMATION
  Report Type: Spontaneous
  Country: US (occurrence: US)
  Receive Date: 20170413
  Receipt Date: 20170413
  Transmission Date: 20170830
  Serious: Yes (Hospitalization)
  Sender: FDA-Public Use
  Company Number: None

PATIENT
  Age: 74 Year
  Sex: Female
  Weight: 63.9 kg

DRUGS (2)
  1. ESTRODIAL [Suspect]
     Active Substance: ESTRADIOL
     Indication: DRUG THERAPY
     Dosage: 0.025 MG Q84 HOURS TRANSDERMAL
     Route: 062
     Dates: start: 20170327, end: 20170403
  2. VIVELLE-DOT [Suspect]
     Active Substance: ESTRADIOL
     Indication: DRUG THERAPY
     Dosage: 0.025 MG Q84 HOURS TRANSDERMAL
     Route: 062
     Dates: start: 20170327, end: 20170403

REACTIONS (2)
  - Appendicitis [None]
  - Abdominal discomfort [None]

NARRATIVE: CASE EVENT DATE: 20170404
